FAERS Safety Report 7973952-0 (Version None)
Quarter: 2011Q4

REPORT INFORMATION
  Report Type: 
  Country: None (occurrence: None)
  Receive Date: 20111129
  Receipt Date: 20110822
  Transmission Date: 20120403
  Serious: Yes (Other)
  Sender: FDA-Public Use
  Company Number: PHEH2011US02132

PATIENT
  Age: 82 Year
  Sex: Male

DRUGS (4)
  1. AFINITOR [Suspect]
     Dosage: 10 MG, QD
  2. DIOVAN [Concomitant]
  3. VITAMIN B6 [Concomitant]
  4. VITAMIN B12 [Concomitant]

REACTIONS (3)
  - DYSPNOEA [None]
  - FEELING ABNORMAL [None]
  - SPEECH DISORDER [None]
